FAERS Safety Report 5810192-5 (Version None)
Quarter: 2008Q3

REPORT INFORMATION
  Report Type: 
  Country: None (occurrence: None)
  Receive Date: 20080715
  Receipt Date: 20071012
  Transmission Date: 20090109
  Serious: No
  Sender: FDA-Public Use
  Company Number: A0687552A

PATIENT
  Age: 14 Year
  Sex: Male
  Weight: 59.1 kg

DRUGS (1)
  1. IMITREX [Suspect]
     Indication: MIGRAINE
     Dosage: 25MG SINGLE DOSE
     Route: 048
     Dates: start: 20071010

REACTIONS (2)
  - DRUG INEFFECTIVE [None]
  - MEDICATION ERROR [None]
